APPROVED DRUG PRODUCT: ZITUVIMET XR
Active Ingredient: METFORMIN HYDROCHLORIDE; SITAGLIPTIN
Strength: 1GM;50MG
Dosage Form/Route: TABLET, EXTENDED RELEASE;ORAL
Application: N216778 | Product #002
Applicant: ZYDUS LIFESCIENCES GLOBAL FZE
Approved: Jul 18, 2024 | RLD: Yes | RS: No | Type: RX